FAERS Safety Report 16958194 (Version 4)
Quarter: 2019Q4

REPORT INFORMATION
  Report Type: Report from Study
  Country: US (occurrence: US)
  Receive Date: 20191024
  Receipt Date: 20191216
  Transmission Date: 20200122
  Serious: Yes (Hospitalization, Other)
  Sender: FDA-Public Use
  Company Number: PHHO2019US009221

PATIENT
  Sex: Female

DRUGS (8)
  1. PACLITAXEL. [Suspect]
     Active Substance: PACLITAXEL
     Indication: OVARIAN EPITHELIAL CANCER
     Dosage: 155 MG, ONCE/SINGLE
     Route: 042
     Dates: start: 20190409, end: 20190409
  2. PACLITAXEL. [Suspect]
     Active Substance: PACLITAXEL
     Dosage: 135 MG, QW
     Route: 042
     Dates: start: 20190731
  3. DOXIL [Concomitant]
     Active Substance: DOXORUBICIN HYDROCHLORIDE
     Indication: REFRACTORY CANCER
     Route: 065
  4. AVASTIN [Concomitant]
     Active Substance: BEVACIZUMAB
     Indication: REFRACTORY CANCER
     Route: 065
  5. CARBOPLATIN FOR INJECTION [Suspect]
     Active Substance: CARBOPLATIN
     Indication: OVARIAN EPITHELIAL CANCER
     Dosage: 592 MG, ONCE/SINGLE
     Route: 042
     Dates: start: 20190409
  6. INC424A [Suspect]
     Active Substance: RUXOLITINIB
     Dosage: 10 MG, BID
     Route: 048
     Dates: start: 20190821, end: 20190904
  7. PACLITAXEL. [Suspect]
     Active Substance: PACLITAXEL
     Dosage: 146 MG, QW
     Route: 042
     Dates: start: 20190416, end: 20190724
  8. INC424A [Suspect]
     Active Substance: RUXOLITINIB
     Indication: OVARIAN EPITHELIAL CANCER
     Dosage: 15 MG, BID
     Route: 048
     Dates: start: 20190409

REACTIONS (6)
  - Pneumonia [Recovered/Resolved]
  - Anaemia [Recovered/Resolved]
  - White blood cell count decreased [Recovered/Resolved]
  - Clostridium difficile infection [Recovered/Resolved]
  - Neutrophil count decreased [Recovered/Resolved]
  - Platelet count decreased [Recovered/Resolved]

NARRATIVE: CASE EVENT DATE: 20190902
